FAERS Safety Report 23677491 (Version 1)
Quarter: 2024Q1

REPORT INFORMATION
  Report Type: Spontaneous
  Country: US (occurrence: None)
  Receive Date: 20240326
  Receipt Date: 20240326
  Transmission Date: 20240409
  Serious: No
  Sender: FDA-Public Use
  Company Number: None

PATIENT
  Age: 72 Year
  Sex: Female
  Weight: 73.48 kg

DRUGS (7)
  1. INGREZZA [Suspect]
     Active Substance: VALBENAZINE
     Dosage: 1 CAPSULE  DAILY BY MOUTH ??ESTIMATE OF DURTION:  1 PILL FIRST DAY
     Route: 048
     Dates: start: 20240302, end: 20240303
  2. LOSARTAN [Concomitant]
     Active Substance: LOSARTAN
  3. GABPENTIN [Concomitant]
  4. ATENOLOL [Concomitant]
     Active Substance: ATENOLOL
  5. OMEPRAZOLE [Concomitant]
     Active Substance: OMEPRAZOLE
  6. LACTASE [Concomitant]
     Active Substance: LACTASE
  7. CALCIUM WITH  ZINC AND MAGNESIUM [Concomitant]

REACTIONS (5)
  - Diarrhoea [None]
  - Drug ineffective [None]
  - Sleep disorder [None]
  - Sinus congestion [None]
  - Headache [None]

NARRATIVE: CASE EVENT DATE: 20240302
